FAERS Safety Report 5803463-X (Version None)
Quarter: 2008Q3

REPORT INFORMATION
  Report Type: 
  Country: None (occurrence: None)
  Receive Date: 20080708
  Receipt Date: 20080624
  Transmission Date: 20090109
  Serious: Yes (Other)
  Sender: FDA-Public Use
  Company Number: PHHY2008FR12269

PATIENT
  Sex: Female

DRUGS (1)
  1. LESCOL [Suspect]

REACTIONS (4)
  - ANXIETY [None]
  - FLUSHING [None]
  - TRANSAMINASES INCREASED [None]
  - VARICES OESOPHAGEAL [None]
